FAERS Safety Report 23388778 (Version 4)
Quarter: 2025Q2

REPORT INFORMATION
  Report Type: Report from Study
  Country: CA (occurrence: CA)
  Receive Date: 20240110
  Receipt Date: 20250620
  Transmission Date: 20250716
  Serious: Yes (Hospitalization, Other)
  Sender: TAKEDA
  Company Number: CA-TAKEDA-2024TUS001459

PATIENT
  Age: 43 Year
  Sex: Female

DRUGS (22)
  1. VEDOLIZUMAB [Suspect]
     Active Substance: VEDOLIZUMAB
     Indication: Crohn^s disease
  2. VEDOLIZUMAB [Suspect]
     Active Substance: VEDOLIZUMAB
     Dosage: 300 MILLIGRAM, Q4WEEKS
     Dates: start: 20180904
  3. VEDOLIZUMAB [Suspect]
     Active Substance: VEDOLIZUMAB
  4. VEDOLIZUMAB [Suspect]
     Active Substance: VEDOLIZUMAB
     Dosage: 300 MILLIGRAM, Q4WEEKS
     Dates: start: 20201022
  5. VEDOLIZUMAB [Suspect]
     Active Substance: VEDOLIZUMAB
     Dosage: 300 MILLIGRAM, Q4WEEKS
  6. VEDOLIZUMAB [Suspect]
     Active Substance: VEDOLIZUMAB
     Indication: Crohn^s disease
     Dosage: 108 MILLIGRAM, 1/WEEK
     Dates: start: 20240620
  7. HUMIRA [Concomitant]
     Active Substance: ADALIMUMAB
  8. METHOTREXATE [Concomitant]
     Active Substance: METHOTREXATE
  9. OXYCODONE HYDROCHLORIDE [Concomitant]
     Active Substance: OXYCODONE HYDROCHLORIDE
  10. PREVACID [Concomitant]
     Active Substance: LANSOPRAZOLE
  11. FOLIC ACID [Concomitant]
     Active Substance: FOLIC ACID
  12. CALCIUM [Concomitant]
     Active Substance: CALCIUM
  13. POTASSIUM [Concomitant]
     Active Substance: POTASSIUM
  14. CITALOPRAM [Concomitant]
     Active Substance: CITALOPRAM
  15. DESYREL [Concomitant]
     Active Substance: TRAZODONE HYDROCHLORIDE
  16. PROPRANOLOL HYDROCHLORIDE [Concomitant]
     Active Substance: PROPRANOLOL HYDROCHLORIDE
  17. SUCRALFATE [Concomitant]
     Active Substance: SUCRALFATE
  18. MORPHINE [Concomitant]
     Active Substance: MORPHINE
  19. DOMPERIDONE [Concomitant]
     Active Substance: DOMPERIDONE
  20. SULFATRIM [Concomitant]
     Active Substance: SULFAMETHOXAZOLE\TRIMETHOPRIM
  21. DECADRON [Concomitant]
     Active Substance: DEXAMETHASONE
  22. HYDROCHLOROTHIAZIDE [Concomitant]
     Active Substance: HYDROCHLOROTHIAZIDE

REACTIONS (5)
  - Intestinal obstruction [Recovered/Resolved]
  - Impaired gastric emptying [Recovered/Resolved]
  - Off label use [Unknown]
  - Malaise [Unknown]
  - Arthralgia [Unknown]

NARRATIVE: CASE EVENT DATE: 20180904
